FAERS Safety Report 11096907 (Version 1)
Quarter: 2015Q2

REPORT INFORMATION
  Report Type: Spontaneous
  Country: US (occurrence: None)
  Receive Date: 20150506
  Receipt Date: 20150506
  Transmission Date: 20150821
  Serious: Yes (Hospitalization, Other)
  Sender: FDA-Public Use
  Company Number: None

PATIENT
  Age: 92 Year
  Sex: Male
  Weight: 75 kg

DRUGS (1)
  1. WARFARIN [Suspect]
     Active Substance: WARFARIN
     Route: 048
     Dates: start: 20141201, end: 20150227

REACTIONS (6)
  - Haemorrhage intracranial [None]
  - Atrial fibrillation [None]
  - Haemorrhage [None]
  - International normalised ratio increased [None]
  - Hypophagia [None]
  - Acute kidney injury [None]

NARRATIVE: CASE EVENT DATE: 20150227
